FAERS Safety Report 5215891-4 (Version None)
Quarter: 2007Q1

REPORT INFORMATION
  Report Type: 
  Country: None (occurrence: None)
  Receive Date: 20070123
  Receipt Date: 20070112
  Transmission Date: 20070707
  Serious: Yes (Hospitalization)
  Sender: FDA-Public Use
  Company Number: GB-ROCHE-478693

PATIENT
  Age: 87 Year
  Sex: Female

DRUGS (3)
  1. NAPROXEN [Suspect]
     Indication: PAIN
     Route: 048
     Dates: end: 20060914
  2. BUMETANIDE [Concomitant]
     Indication: OEDEMA
     Route: 048
  3. OMEPRAZOLE [Concomitant]
     Route: 048

REACTIONS (3)
  - GASTRIC ULCER [None]
  - HAEMOGLOBIN DECREASED [None]
  - OESOPHAGITIS [None]
